FAERS Safety Report 7465946-9 (Version None)
Quarter: 2011Q2

REPORT INFORMATION
  Report Type: 
  Country: None (occurrence: None)
  Receive Date: 20110509
  Receipt Date: 20100617
  Transmission Date: 20111010
  Serious: No
  Sender: FDA-Public Use
  Company Number: US-ALEXION-A200901063

PATIENT
  Sex: Male
  Weight: 84.127 kg

DRUGS (7)
  1. SOLIRIS [Suspect]
     Dosage: 900 MG, Q2W
     Route: 042
     Dates: start: 20091209
  2. FOLIC ACID [Concomitant]
     Dosage: 1 MG, QD
  3. TESTOSTERONE [Concomitant]
     Dosage: 200 MG, QMONTH
  4. SOLIRIS [Suspect]
     Indication: PAROXYSMAL NOCTURNAL HAEMOGLOBINURIA
     Dosage: 600 MG, QW X 4
     Route: 042
     Dates: start: 20091111, end: 20091202
  5. METHADONE HCL [Concomitant]
     Indication: PAIN
     Dosage: 15 MG, PRN
     Route: 048
  6. ADDERALL 10 [Concomitant]
     Indication: ATTENTION DEFICIT/HYPERACTIVITY DISORDER
     Dosage: 10 MG, TID
     Route: 048
  7. MULTI-VITAMINS [Concomitant]
     Dosage: UNK
     Route: 048

REACTIONS (6)
  - FEELING ABNORMAL [None]
  - UPPER RESPIRATORY TRACT INFECTION [None]
  - NASOPHARYNGITIS [None]
  - BLOOD PRESSURE DECREASED [None]
  - ARTHRALGIA [None]
  - FATIGUE [None]
